FAERS Safety Report 6383131-9 (Version None)
Quarter: 2009Q3

REPORT INFORMATION
  Report Type: 
  Country: None (occurrence: None)
  Receive Date: 20090928
  Receipt Date: 20090915
  Transmission Date: 20100115
  Serious: Yes (Other)
  Sender: FDA-Public Use
  Company Number: 2009S1007236

PATIENT
  Age: 66 Year
  Sex: Male

DRUGS (10)
  1. PHOSPHOSODA FLAVOR NOT SPECIFIED [Suspect]
     Indication: COLONOSCOPY
     Dosage: PO; PO
     Route: 048
     Dates: start: 20040902
  2. PHOSPHOSODA FLAVOR NOT SPECIFIED [Suspect]
     Indication: COLONOSCOPY
     Dosage: PO; PO
     Route: 048
     Dates: start: 20041010
  3. SINGULAIR [Concomitant]
  4. ZANTAC /00550802/ [Concomitant]
  5. DYNACIRC [Concomitant]
  6. ZOCOR [Concomitant]
  7. CATAPRESS-TTS [Concomitant]
  8. FEOSOL [Concomitant]
  9. ASPIRIN CHILDREN [Concomitant]
  10. MULTIVITAMIN /00831701 [Concomitant]

REACTIONS (8)
  - DIALYSIS [None]
  - DIZZINESS [None]
  - HYPERPHOSPHATAEMIA [None]
  - HYPERTENSION [None]
  - IRON DEFICIENCY ANAEMIA [None]
  - NEPHROSCLEROSIS [None]
  - PRESYNCOPE [None]
  - RENAL FAILURE ACUTE [None]
